FAERS Safety Report 4596878-1 (Version None)
Quarter: 2005Q1

REPORT INFORMATION
  Report Type: 
  Country: None (occurrence: None)
  Receive Date: 20050228
  Receipt Date: 20050218
  Transmission Date: 20050727
  Serious: Yes (Hospitalization)
  Sender: FDA-Public Use
  Company Number: 2005UW02816

PATIENT
  Age: 84 Year
  Sex: Male

DRUGS (2)
  1. SEROQUEL [Suspect]
     Dosage: 100  MG BID PO
     Route: 048
     Dates: start: 20040801
  2. VICKS [Suspect]
     Indication: COUGH

REACTIONS (3)
  - ABASIA [None]
  - DISORIENTATION [None]
  - DYSSTASIA [None]
